FAERS Safety Report 9322507 (Version 2)
Quarter: 2013Q3

REPORT INFORMATION
  Report Type: Spontaneous
  Country: US (occurrence: US)
  Receive Date: 20130531
  Receipt Date: 20130724
  Transmission Date: 20140515
  Serious: Yes (Hospitalization, Other)
  Sender: FDA-Public Use
  Company Number: US-PFIZER INC-2013165638

PATIENT
  Age: 88 Year
  Sex: Female
  Weight: 73.92 kg

DRUGS (5)
  1. LYRICA [Suspect]
     Indication: HERPES ZOSTER
     Dosage: 50 (NO UNITS PROVIDED)
     Route: 048
     Dates: start: 20130128, end: 20130131
  2. ACICLOVIR [Interacting]
     Indication: HERPES ZOSTER
     Dosage: UNK
  3. NORCO [Interacting]
     Indication: HERPES ZOSTER
     Dosage: UNK
  4. FAMVIR [Suspect]
     Indication: HERPES ZOSTER
     Dosage: 500 MG, UNK
     Route: 048
     Dates: start: 20130121, end: 20130128
  5. SERTRALINE HYDROCHLORIDE [Concomitant]
     Dosage: UNK

REACTIONS (6)
  - Drug interaction [Recovered/Resolved]
  - Convulsion [Recovered/Resolved]
  - Urinary incontinence [Unknown]
  - Faecal incontinence [Unknown]
  - Aura [Unknown]
  - Headache [Unknown]
